FAERS Safety Report 15183278 (Version 2)
Quarter: 2018Q3

REPORT INFORMATION
  Report Type: Spontaneous
  Country: SE (occurrence: SE)
  Receive Date: 20180723
  Receipt Date: 20180817
  Transmission Date: 20181010
  Serious: Yes (Other)
  Sender: FDA-Public Use
  Company Number: SE-ELI_LILLY_AND_COMPANY-SE201807005169

PATIENT
  Age: 63 Year
  Sex: Male

DRUGS (3)
  1. LITHIONIT [Concomitant]
     Active Substance: LITHIUM SULFATE
     Indication: PRODUCT USED FOR UNKNOWN INDICATION
     Dosage: 126MG EACH MORNING AND 126 MG EACH NIGHT
     Route: 065
  2. METFORMIN [Concomitant]
     Active Substance: METFORMIN HYDROCHLORIDE
     Indication: PRODUCT USED FOR UNKNOWN INDICATION
     Dosage: UNK, UNKNOWN
     Route: 065
  3. ZYPADHERA [Suspect]
     Active Substance: OLANZAPINE PAMOATE
     Indication: BIPOLAR DISORDER
     Dosage: 405 MG, 2/M
     Route: 030
     Dates: start: 20180328

REACTIONS (11)
  - Pallor [Unknown]
  - Cold sweat [Unknown]
  - Post-injection delirium sedation syndrome [Unknown]
  - Extrapyramidal disorder [Unknown]
  - Dizziness [Unknown]
  - Sedation [Unknown]
  - Prescribed overdose [Unknown]
  - Ataxia [Unknown]
  - Feeling abnormal [Unknown]
  - Confusional state [Unknown]
  - Dysarthria [Unknown]

NARRATIVE: CASE EVENT DATE: 20180704
